FAERS Safety Report 21368281 (Version 1)
Quarter: 2022Q3

REPORT INFORMATION
  Report Type: Spontaneous
  Country: JP (occurrence: JP)
  Receive Date: 20220923
  Receipt Date: 20220923
  Transmission Date: 20221027
  Serious: Yes (Hospitalization, Other)
  Sender: FDA-Public Use
  Company Number: JP-ONO-2022JP026074

PATIENT
  Age: 8 Decade
  Sex: Male

DRUGS (1)
  1. OPDIVO [Suspect]
     Active Substance: NIVOLUMAB
     Indication: Gastric cancer
     Dosage: 240 MG, Q2W
     Route: 041

REACTIONS (4)
  - Melaena [Recovered/Resolved]
  - Diarrhoea [Recovered/Resolved]
  - Adrenal insufficiency [Not Recovered/Not Resolved]
  - Superior mesenteric artery syndrome [Unknown]

NARRATIVE: CASE EVENT DATE: 20220801
